FAERS Safety Report 8289114-6 (Version None)
Quarter: 2012Q2

REPORT INFORMATION
  Report Type: 
  Country: None (occurrence: None)
  Receive Date: 20120417
  Receipt Date: 20120410
  Transmission Date: 20120825
  Serious: Yes (Other)
  Sender: FDA-Public Use
  Company Number: CA-JNJFOC-20120405668

PATIENT
  Sex: Female

DRUGS (2)
  1. SIMPONI [Suspect]
     Route: 058
     Dates: start: 20120322
  2. SIMPONI [Suspect]
     Indication: RHEUMATOID ARTHRITIS
     Route: 058
     Dates: start: 20110706

REACTIONS (4)
  - BLOOD PRESSURE DECREASED [None]
  - ASTHENIA [None]
  - CHILLS [None]
  - DRUG INEFFECTIVE [None]
